FAERS Safety Report 9621446 (Version 2)
Quarter: 2013Q4

REPORT INFORMATION
  Report Type: Spontaneous
  Country: JP (occurrence: JP)
  Receive Date: 20131015
  Receipt Date: 20131025
  Transmission Date: 20140711
  Serious: Yes (Other)
  Sender: FDA-Public Use
  Company Number: PHHY2013JP115492

PATIENT
  Age: 87 Year
  Sex: Female

DRUGS (3)
  1. EXELON PATCH [Suspect]
     Dosage: UNK UKN, UNK
     Route: 062
  2. EXELON PATCH [Suspect]
     Dosage: 13.5 MG, DAILY
     Route: 062
  3. STAYBLA [Concomitant]
     Indication: HYPERTONIC BLADDER
     Dosage: UNK UKN, UNK

REACTIONS (2)
  - Urinary retention [Unknown]
  - Therapeutic response increased [Unknown]
